FAERS Safety Report 25307512 (Version 2)
Quarter: 2025Q2

REPORT INFORMATION
  Report Type: Spontaneous
  Country: RO (occurrence: RO)
  Receive Date: 20250513
  Receipt Date: 20250617
  Transmission Date: 20250716
  Serious: Yes (Other)
  Sender: NOVARTIS
  Company Number: RO-UCBSA-2025025715

PATIENT
  Age: 3 Year
  Sex: Female

DRUGS (8)
  1. OXCARBAZEPINE [Suspect]
     Active Substance: OXCARBAZEPINE
     Indication: Product used for unknown indication
     Route: 065
  2. KEPPRA [Suspect]
     Active Substance: LEVETIRACETAM
     Indication: Product used for unknown indication
     Dosage: UNK UNK, BID (2X/DAY (BID) )
     Route: 065
     Dates: start: 2014
  3. KEPPRA [Suspect]
     Active Substance: LEVETIRACETAM
     Dosage: 50 MG/KG, QD
     Route: 065
     Dates: start: 2014
  4. KEPPRA [Suspect]
     Active Substance: LEVETIRACETAM
     Route: 065
     Dates: end: 2019
  5. KEPPRA [Suspect]
     Active Substance: LEVETIRACETAM
     Indication: Product used for unknown indication
     Route: 065
     Dates: end: 2021
  6. VALPROIC ACID [Suspect]
     Active Substance: VALPROIC ACID
     Indication: Epileptic encephalopathy
     Route: 065
  7. CARBAMAZEPINE [Suspect]
     Active Substance: CARBAMAZEPINE
     Indication: Product used for unknown indication
     Route: 065
  8. SULTHIAME [Suspect]
     Active Substance: SULTHIAME
     Indication: Product used for unknown indication
     Route: 065

REACTIONS (3)
  - Brain neoplasm [Unknown]
  - Multiple-drug resistance [Unknown]
  - Wrong technique in product usage process [Unknown]

NARRATIVE: CASE EVENT DATE: 20130101
